FAERS Safety Report 19067826 (Version 3)
Quarter: 2021Q2

REPORT INFORMATION
  Report Type: Spontaneous
  Country: US (occurrence: US)
  Receive Date: 20210329
  Receipt Date: 20210623
  Transmission Date: 20210717
  Serious: Yes (Other)
  Sender: FDA-Public Use
  Company Number: US-PFIZER INC-2021303009

PATIENT
  Age: 46 Year
  Sex: Female

DRUGS (1)
  1. XELJANZ [Suspect]
     Active Substance: TOFACITINIB CITRATE
     Indication: RHEUMATOID ARTHRITIS
     Dosage: 5 MG, 2X/DAY
     Route: 048
     Dates: start: 20210225, end: 20210609

REACTIONS (5)
  - Depression [Not Recovered/Not Resolved]
  - Blood test abnormal [Unknown]
  - Pain [Recovering/Resolving]
  - Anxiety [Not Recovered/Not Resolved]
  - Discouragement [Unknown]

NARRATIVE: CASE EVENT DATE: 2021
